FAERS Safety Report 24730336 (Version 1)
Quarter: 2024Q4

REPORT INFORMATION
  Report Type: Spontaneous
  Country: RU (occurrence: RU)
  Receive Date: 20241213
  Receipt Date: 20241213
  Transmission Date: 20250114
  Serious: Yes (Hospitalization, Other)
  Sender: ROCHE
  Company Number: RU-ROCHE-10000151742

PATIENT
  Age: 51 Year
  Sex: Female
  Weight: 89 kg

DRUGS (5)
  1. PERTUZUMAB [Suspect]
     Active Substance: PERTUZUMAB
     Indication: Breast cancer
     Dosage: 840 MG LOADING DOSE FOLLOWED BY 420 MG
     Route: 065
  2. TRASTUZUMAB [Suspect]
     Active Substance: TRASTUZUMAB
     Indication: Breast cancer
     Dosage: 712 MG LOADING DOSE FOLLOWED BY 534 MG
     Route: 042
  3. DOCETAXEL [Suspect]
     Active Substance: DOCETAXEL
     Indication: Breast cancer
     Dosage: 75 MG/M2 - 150 MG
     Route: 042
  4. CARBOPLATIN [Suspect]
     Active Substance: CARBOPLATIN
     Indication: Breast cancer
     Route: 042
  5. EMPEGFILGRASTIM [Concomitant]
     Active Substance: EMPEGFILGRASTIM

REACTIONS (20)
  - Pyelonephritis acute [Unknown]
  - Cystitis [Unknown]
  - Febrile neutropenia [Unknown]
  - Gastroenteritis [Unknown]
  - Abdominal pain [Unknown]
  - Asthenia [Unknown]
  - Haematuria [Recovered/Resolved]
  - Ureteric dilatation [Unknown]
  - Aortic arteriosclerosis [Unknown]
  - Oliguria [Unknown]
  - Hypotension [Unknown]
  - Clostridial infection [Unknown]
  - Colitis [Unknown]
  - Pleural effusion [Unknown]
  - Localised oedema [Unknown]
  - Pulmonary embolism [Unknown]
  - Varicose vein [Unknown]
  - Oedema [Unknown]
  - Ureteric dilatation [Unknown]
  - Hyperthermia [Unknown]
